FAERS Safety Report 6277663-1 (Version None)
Quarter: 2009Q3

REPORT INFORMATION
  Report Type: 
  Country: None (occurrence: None)
  Receive Date: 20090717
  Receipt Date: 20090717
  Transmission Date: 20100115
  Serious: Yes (Other)
  Sender: FDA-Public Use
  Company Number: None

PATIENT
  Age: 62 Year
  Sex: Male
  Weight: 88.6 kg

DRUGS (1)
  1. DIGOXIN [Suspect]
     Indication: ATRIAL FIBRILLATION
     Dosage: 125 MCG TID 047, EVERYDAY

REACTIONS (2)
  - ATRIAL FIBRILLATION [None]
  - CARDIOACTIVE DRUG LEVEL BELOW THERAPEUTIC [None]
